FAERS Safety Report 16352671 (Version 2)
Quarter: 2019Q2

REPORT INFORMATION
  Report Type: Report from Study
  Country: US (occurrence: US)
  Receive Date: 20190524
  Receipt Date: 20190607
  Transmission Date: 20190711
  Serious: Yes (Hospitalization, Other)
  Sender: FDA-Public Use
  Company Number: US-ROCHE-2324247

PATIENT
  Sex: Female
  Weight: 37.5 kg

DRUGS (9)
  1. CLEOCIN T [Concomitant]
     Active Substance: CLINDAMYCIN PHOSPHATE
     Dosage: APPLY TOPICALLY ONCE AREAS BEHIND EARS TO TREAT INFECTION
     Route: 061
  2. EMLA [LIDOCAINE;PRILOCAINE] [Concomitant]
     Dosage: APPLY TOPICALLY ONCE
     Route: 061
  3. KENALOG [Concomitant]
     Active Substance: TRIAMCINOLONE ACETONIDE
     Route: 061
  4. NUTROPIN AQ [Suspect]
     Active Substance: SOMATROPIN
     Indication: TURNER^S SYNDROME
     Route: 058
     Dates: start: 201812
  5. OMNICEF [Concomitant]
     Active Substance: CEFDINIR
     Route: 048
  6. CIPRODEX [Concomitant]
     Active Substance: CIPROFLOXACIN HYDROCHLORIDE\DEXAMETHASONE
     Dosage: 4 DROPS IN AFFECTED EARS PRN 2 A DAY
     Route: 065
  7. GENTAMICIN. [Concomitant]
     Active Substance: GENTAMICIN
     Route: 045
  8. HYDROCORTISONE. [Concomitant]
     Active Substance: HYDROCORTISONE
     Dosage: APPLY ONE APPLICATION TOPICALLY ON AFFECTED AREAS BEHIND EARS
     Route: 061
  9. NUTROPIN AQ [Suspect]
     Active Substance: SOMATROPIN
     Route: 058

REACTIONS (4)
  - Syncope [Unknown]
  - Headache [Unknown]
  - Ankle fracture [Unknown]
  - Fatigue [Unknown]
